FAERS Safety Report 15395933 (Version 2)
Quarter: 2018Q3

REPORT INFORMATION
  Report Type: Spontaneous
  Country: DE (occurrence: DE)
  Receive Date: 20180918
  Receipt Date: 20180928
  Transmission Date: 20181010
  Serious: Yes (Other)
  Sender: FDA-Public Use
  Company Number: DE-LPDUSPRD-20181688

PATIENT
  Age: 42 Year
  Sex: Female
  Weight: 52.5 kg

DRUGS (1)
  1. VENOFER [Suspect]
     Active Substance: IRON SUCROSE
     Dosage: UNKNOWN
     Route: 042

REACTIONS (5)
  - Feeling cold [Unknown]
  - Dyspnoea [Unknown]
  - Hyperhidrosis [Unknown]
  - Nausea [Unknown]
  - Dizziness [Unknown]
